FAERS Safety Report 19157084 (Version 1)
Quarter: 2021Q2

REPORT INFORMATION
  Report Type: Report from Study
  Country: US (occurrence: US)
  Receive Date: 20210420
  Receipt Date: 20210420
  Transmission Date: 20210717
  Serious: Yes (Other)
  Sender: FDA-Public Use
  Company Number: US-SUN PHARMACEUTICAL INDUSTRIES LTD-2021R1-292196

PATIENT
  Age: 65 Year
  Sex: Female

DRUGS (2)
  1. LORAZEPAM. [Suspect]
     Active Substance: LORAZEPAM
     Indication: ARTHROPOD STING
     Dosage: UNK
     Route: 065
  2. FENTANYL. [Suspect]
     Active Substance: FENTANYL
     Indication: ARTHROPOD STING
     Dosage: UNK
     Route: 065

REACTIONS (4)
  - Hypoxia [Unknown]
  - Respiratory acidosis [Unknown]
  - Encephalopathy [Unknown]
  - Respiratory distress [Unknown]
